FAERS Safety Report 5255218-5 (Version None)
Quarter: 2007Q1

REPORT INFORMATION
  Report Type: 
  Country: None (occurrence: None)
  Receive Date: 20070228
  Receipt Date: 20070212
  Transmission Date: 20070707
  Serious: Yes (Life-Threatening, Hospitalization)
  Sender: FDA-Public Use
  Company Number: DSA_29459_2007

PATIENT
  Age: 68 Year
  Sex: Male

DRUGS (4)
  1. TILDIEM [Suspect]
     Dosage: 300 MG ONCE PO
     Route: 048
     Dates: start: 20070112, end: 20070112
  2. TILDIEM [Suspect]
     Dosage: 60 MG Q DAY PO
     Route: 048
     Dates: end: 20070112
  3. MICARDIS [Concomitant]
  4. /01220701/ [Concomitant]

REACTIONS (6)
  - ATRIOVENTRICULAR BLOCK FIRST DEGREE [None]
  - ATRIOVENTRICULAR BLOCK SECOND DEGREE [None]
  - BRADYARRHYTHMIA [None]
  - BRADYCARDIA [None]
  - ELECTROCARDIOGRAM QRS COMPLEX SHORTENED [None]
  - INTENTIONAL OVERDOSE [None]
